FAERS Safety Report 6447003-3 (Version None)
Quarter: 2009Q4

REPORT INFORMATION
  Report Type: 
  Country: None (occurrence: None)
  Receive Date: 20091119
  Receipt Date: 20091113
  Transmission Date: 20100525
  Serious: Yes (Other)
  Sender: FDA-Public Use
  Company Number: US-TEVA-215217USA

PATIENT
  Sex: Female

DRUGS (13)
  1. LISINOPRIL W/HYDROCHLOROTHIAZIDE 10 MG/12.5 MG, 20 MG/12.5 MG, 20 MG/2 [Interacting]
     Indication: ATRIAL FIBRILLATION
     Route: 048
  2. WARFARIN SODIUM [Interacting]
     Indication: ATRIAL FIBRILLATION
     Route: 048
     Dates: end: 20091001
  3. AMIODARONE HCL [Suspect]
     Indication: ATRIAL FIBRILLATION
     Route: 048
     Dates: end: 20091001
  4. DRONEDARONE HCL [Interacting]
     Indication: ATRIAL FIBRILLATION
     Route: 048
     Dates: start: 20091022
  5. PREDNISONE [Interacting]
     Route: 048
  6. AMLODIPINE [Interacting]
     Indication: HYPERTENSION
     Route: 048
  7. ACETYLSALICYLIC ACID [Concomitant]
     Route: 048
  8. CALCIUM [Concomitant]
  9. GABAPENTIN [Concomitant]
  10. CINNAMOMUM VERUM [Concomitant]
     Indication: DIABETES MELLITUS
  11. METFORMIN HCL [Concomitant]
     Route: 048
  12. FISH OIL [Concomitant]
     Route: 048
  13. MULTIVITAMIN                       /00831701/ [Concomitant]
     Route: 048

REACTIONS (8)
  - BLOOD PRESSURE DECREASED [None]
  - BLOOD PRESSURE INCREASED [None]
  - CONFUSIONAL STATE [None]
  - DRUG INTERACTION [None]
  - FATIGUE [None]
  - INTERNATIONAL NORMALISED RATIO INCREASED [None]
  - MEMORY IMPAIRMENT [None]
  - THINKING ABNORMAL [None]
